FAERS Safety Report 5142009-9 (Version None)
Quarter: 2006Q4

REPORT INFORMATION
  Report Type: 
  Country: None (occurrence: None)
  Receive Date: 20061102
  Receipt Date: 20061025
  Transmission Date: 20070319
  Serious: Yes (Hospitalization)
  Sender: FDA-Public Use
  Company Number: US-BAYER-200614454BCC

PATIENT
  Age: 93 Year
  Sex: Female
  Weight: 49 kg

DRUGS (5)
  1. PHILLIPS MILK OF MAGNESIA LIQUID ORIGINAL [Suspect]
     Indication: CONSTIPATION
     Dosage: TOTAL DAILY DOSE: 60 ML  UNIT DOSE: 15 ML
     Route: 048
     Dates: start: 20060401
  2. PERCOCET [Concomitant]
  3. OXYGEN [Concomitant]
  4. NITROGLYCERIN [Concomitant]
  5. ACIPHEX [Concomitant]

REACTIONS (3)
  - BLOOD ELECTROLYTES DECREASED [None]
  - BLOOD POTASSIUM DECREASED [None]
  - DYSPNOEA [None]
